FAERS Safety Report 6061327-3 (Version None)
Quarter: 2009Q1

REPORT INFORMATION
  Report Type: 
  Country: None (occurrence: None)
  Receive Date: 20090130
  Receipt Date: 20090130
  Transmission Date: 20090719
  Serious: No
  Sender: FDA-Public Use
  Company Number: None

PATIENT
  Sex: Male
  Weight: 86.36 kg

DRUGS (9)
  1. LISINOPRIL [Suspect]
     Dosage: 30MG TABLET 30 MG QD ORAL
     Route: 048
     Dates: start: 20081106, end: 20090129
  2. ASPIRIN [Concomitant]
  3. GLUCOPHAGE [Concomitant]
  4. HUMULIN N (INSULIN NPH HUMAN) [Concomitant]
  5. HUMULIN R (INSULIN REGULAR HUMAN) [Concomitant]
  6. LASIX [Concomitant]
  7. LIPITOR [Concomitant]
  8. METOPROLOL SUCCINATE EXTENDED RELEASE [Concomitant]
  9. WARFARIN SODIUM [Concomitant]

REACTIONS (1)
  - COUGH [None]
